FAERS Safety Report 9766943 (Version 1)
Quarter: 2013Q4

REPORT INFORMATION
  Report Type: Report from Study
  Country: FR (occurrence: FR)
  Receive Date: 20131217
  Receipt Date: 20131217
  Transmission Date: 20140711
  Serious: Yes (Hospitalization)
  Sender: FDA-Public Use
  Company Number: FR-EISAI INC-E7389-04516-CLI-FR

PATIENT
  Age: 59 Year
  Sex: Female

DRUGS (7)
  1. HALAVEN [Suspect]
     Indication: BREAST CANCER METASTATIC
     Route: 041
     Dates: start: 20130718, end: 20130905
  2. SOLUPRED [Concomitant]
     Indication: HEPATIC PAIN
     Route: 048
     Dates: start: 201308, end: 20130919
  3. SOLUMEDROL [Concomitant]
     Indication: PREMEDICATION
     Route: 042
     Dates: start: 20130711
  4. ZOFRAN [Concomitant]
     Indication: PREMEDICATION
     Route: 042
     Dates: start: 20130711
  5. AMOXICILLIN/CLAVULANATE [Concomitant]
     Indication: PYREXIA
     Route: 048
     Dates: start: 20130819
  6. PARACETAMOL [Concomitant]
     Indication: HEPATIC PAIN
     Dosage: UNKNOWN
     Route: 048
     Dates: start: 20130830, end: 20130919
  7. NEFOPAM [Concomitant]
     Indication: HEPATIC PAIN
     Dosage: UNKNOWN
     Route: 048
     Dates: start: 20130830, end: 20130919

REACTIONS (1)
  - Streptococcal sepsis [Recovered/Resolved]
